FAERS Safety Report 13420741 (Version 2)
Quarter: 2017Q2

REPORT INFORMATION
  Report Type: Spontaneous
  Country: ZA (occurrence: ZA)
  Receive Date: 20170409
  Receipt Date: 20170420
  Transmission Date: 20170830
  Serious: Yes (Hospitalization, Other)
  Sender: FDA-Public Use
  Company Number: ZA-MYLANLABS-2017M1021023

PATIENT

DRUGS (3)
  1. NUZAK [Suspect]
     Active Substance: FLUOXETINE HYDROCHLORIDE
     Indication: DEPRESSION
     Dosage: 20 MG, UNK
     Dates: start: 20161028
  2. URBANOL [Suspect]
     Active Substance: CLOBAZAM
     Indication: DEPRESSION
     Dosage: 10 MG, UNK
     Dates: start: 20161028
  3. MYLAN PANTOPRAZOLE 40 MG [Suspect]
     Active Substance: PANTOPRAZOLE SODIUM
     Indication: DIURETIC THERAPY
     Dosage: 40 MG, UNK
     Dates: start: 20161028

REACTIONS (2)
  - Depression [Unknown]
  - Intentional product misuse [Unknown]
